FAERS Safety Report 8941541 (Version 4)
Quarter: 2013Q2

REPORT INFORMATION
  Report Type: Spontaneous
  Country: IE (occurrence: IE)
  Receive Date: 20121203
  Receipt Date: 20130502
  Transmission Date: 20140414
  Serious: Yes (Other)
  Sender: FDA-Public Use
  Company Number: PHFR2012IE006146

PATIENT
  Age: 58 Year
  Sex: Male

DRUGS (1)
  1. CLOZARIL [Suspect]
     Indication: SCHIZOPHRENIA
     Dosage: 500 MG
     Route: 048
     Dates: start: 20010701

REACTIONS (6)
  - Urinary tract infection [Recovered/Resolved]
  - White blood cell count increased [Not Recovered/Not Resolved]
  - Differential white blood cell count abnormal [Recovered/Resolved]
  - Neutrophil count increased [Not Recovered/Not Resolved]
  - Kidney infection [Unknown]
  - Prostatomegaly [Unknown]
